FAERS Safety Report 9507259 (Version 2)
Quarter: 2013Q3

REPORT INFORMATION
  Report Type: Report from Study
  Country: PH (occurrence: PH)
  Receive Date: 20130909
  Receipt Date: 20130909
  Transmission Date: 20140515
  Serious: Yes (Hospitalization)
  Sender: FDA-Public Use
  Company Number: PHHO2011PH021307

PATIENT
  Age: 73 Year
  Sex: Male

DRUGS (5)
  1. ESIDREX K [Suspect]
     Indication: CARDIOVASCULAR DISORDER
     Route: 048
  2. ALISKIREN [Suspect]
     Indication: CARDIOVASCULAR DISORDER
     Route: 048
     Dates: start: 20111116
  3. ESIDREX [Suspect]
     Indication: CARDIOVASCULAR DISORDER
     Route: 048
     Dates: start: 20111116
  4. AMLODIPINE [Concomitant]
     Dosage: 5 MG,
  5. LOSARTAN [Concomitant]
     Dosage: 40 MG,

REACTIONS (2)
  - Lung infection [Unknown]
  - Concussion [Unknown]
